FAERS Safety Report 20181868 (Version 5)
Quarter: 2021Q4

REPORT INFORMATION
  Report Type: Spontaneous
  Country: IT (occurrence: IT)
  Receive Date: 20211214
  Receipt Date: 20211230
  Transmission Date: 20220303
  Serious: Yes (Hospitalization)
  Sender: FDA-Public Use
  Company Number: IT-BRUNO-20210366

PATIENT
  Age: 89 Year
  Sex: Female

DRUGS (5)
  1. GABAPENTIN [Interacting]
     Active Substance: GABAPENTIN
     Indication: Trigeminal neuralgia
     Dosage: 900 MG, 1X/DAY (300 MG TID)
  2. ATENOLOL [Suspect]
     Active Substance: ATENOLOL
     Dosage: 100 MG
     Route: 065
  3. FLECAINIDE [Interacting]
     Active Substance: FLECAINIDE
     Indication: Atrial fibrillation
     Dosage: 2 DOSAGES 100 MG DAILY
     Route: 065
     Dates: start: 2013
  4. RAMIPRIL [Suspect]
     Active Substance: RAMIPRIL
     Dosage: 2.5 MG
  5. DABIGATRAN [Suspect]
     Active Substance: DABIGATRAN
     Dosage: 2 DOSAGES 110 MG DAILY

REACTIONS (4)
  - Toxicity to various agents [Unknown]
  - Drug interaction [Unknown]
  - Bradyarrhythmia [Recovered/Resolved]
  - Off label use [Unknown]
